FAERS Safety Report 9500520 (Version 3)
Quarter: 2014Q4

REPORT INFORMATION
  Report Type: Report from Study
  Country: US (occurrence: US)
  Receive Date: 20130905
  Receipt Date: 20141106
  Transmission Date: 20150529
  Serious: Yes (Hospitalization, Other)
  Sender: FDA-Public Use
  Company Number: US-ASTELLAS-2013US009151

PATIENT
  Age: 14 Year
  Sex: Female

DRUGS (3)
  1. MOMETASONE [Concomitant]
     Active Substance: MOMETASONE
     Indication: DERMATITIS ATOPIC
     Dosage: UNK UNK, UNKNOWN FREQ.
     Route: 061
  2. VANICREAM [Concomitant]
     Active Substance: TITANIUM DIOXIDE\ZINC OXIDE
     Indication: DERMATITIS ATOPIC
     Dosage: UNK UNK, UNKNOWN FREQ.
     Route: 065
  3. TACROLIMUS. [Suspect]
     Active Substance: TACROLIMUS
     Indication: DERMATITIS ATOPIC
     Dosage: 0.1 %, UNKNOWN FREQ.
     Route: 061
     Dates: start: 20060714

REACTIONS (5)
  - Suicidal ideation [Unknown]
  - Polycystic ovaries [Unknown]
  - Off label use [Unknown]
  - Suicidal ideation [Unknown]
  - Major depression [Unknown]

NARRATIVE: CASE EVENT DATE: 201304
